FAERS Safety Report 12484682 (Version 2)
Quarter: 2016Q3

REPORT INFORMATION
  Report Type: Spontaneous
  Country: US (occurrence: US)
  Receive Date: 20160621
  Receipt Date: 20160726
  Transmission Date: 20161109
  Serious: No
  Sender: FDA-Public Use
  Company Number: US-BAYER-2016-113483

PATIENT
  Sex: Female
  Weight: 57.6 kg

DRUGS (2)
  1. MILK OF MAGNESIA CHERRY [Suspect]
     Active Substance: MAGNESIUM HYDROXIDE
     Indication: CONSTIPATION
     Dosage: 4 TABLESPOONS
     Route: 048
  2. MILK OF MAGNESIA CHERRY [Suspect]
     Active Substance: MAGNESIUM HYDROXIDE
     Indication: CONSTIPATION
     Dosage: 1.5 TABLESPOONS AS NEEDED FOR CONSTIPATION
     Route: 048

REACTIONS (9)
  - Reaction to drug excipients [Not Recovered/Not Resolved]
  - Chest discomfort [Recovered/Resolved]
  - Frequent bowel movements [Recovered/Resolved]
  - Product use issue [Recovered/Resolved]
  - Diarrhoea [Recovered/Resolved]
  - Abnormal faeces [Recovered/Resolved]
  - Nausea [None]
  - Drug effect incomplete [None]
  - Underdose [None]

NARRATIVE: CASE EVENT DATE: 2016
